FAERS Safety Report 6222049-9 (Version None)
Quarter: 2009Q2

REPORT INFORMATION
  Report Type: 
  Country: None (occurrence: None)
  Receive Date: 20090608
  Receipt Date: 20090608
  Transmission Date: 20091009
  Serious: Yes (Other)
  Sender: FDA-Public Use
  Company Number: None

PATIENT
  Age: 45 Year
  Sex: Female

DRUGS (1)
  1. BUPROPION HCL [Suspect]
     Dosage: 150MG QD PO
     Route: 048
     Dates: start: 20090201, end: 20090607

REACTIONS (6)
  - ANGER [None]
  - ARTHRALGIA [None]
  - CRYING [None]
  - MYALGIA [None]
  - PRODUCT SUBSTITUTION ISSUE [None]
  - PRURITUS [None]
